FAERS Safety Report 6752559-7 (Version None)
Quarter: 2010Q2

REPORT INFORMATION
  Report Type: 
  Country: None (occurrence: None)
  Receive Date: 20100602
  Receipt Date: 20100526
  Transmission Date: 20101027
  Serious: Yes (Other)
  Sender: FDA-Public Use
  Company Number: US-BAXTER-2010BH014155

PATIENT
  Age: 22 Year
  Sex: Female

DRUGS (1)
  1. HEPARIN [Suspect]
     Indication: PROPHYLAXIS
     Route: 065

REACTIONS (2)
  - DRUG EXPOSURE DURING PREGNANCY [None]
  - UTERINE HAEMATOMA [None]
